FAERS Safety Report 8301674-5 (Version None)
Quarter: 2012Q1

REPORT INFORMATION
  Report Type: 
  Country: None (occurrence: None)
  Receive Date: 20120326
  Receipt Date: 20110809
  Transmission Date: 20120608
  Serious: Yes (Hospitalization, Other)
  Sender: FDA-Public Use
  Company Number: PHHY2011US68630

PATIENT
  Age: 63 Year
  Sex: Female

DRUGS (2)
  1. GLEEVEC [Suspect]
     Indication: CHRONIC MYELOID LEUKAEMIA
     Dates: start: 20091001, end: 20110701
  2. TASIGNA [Suspect]
     Indication: CHRONIC MYELOID LEUKAEMIA
     Dosage: 300 MG, BID, ORAL
     Route: 048
     Dates: start: 20110714

REACTIONS (11)
  - DYSPNOEA [None]
  - WHITE BLOOD CELL COUNT INCREASED [None]
  - PRODUCTIVE COUGH [None]
  - PYREXIA [None]
  - PANIC ATTACK [None]
  - PARAESTHESIA [None]
  - HEADACHE [None]
  - ARTHRALGIA [None]
  - OROPHARYNGEAL PAIN [None]
  - SEPSIS [None]
  - FATIGUE [None]
